FAERS Safety Report 10022655 (Version 2)
Quarter: 2014Q2

REPORT INFORMATION
  Report Type: Report from Study
  Country: IN (occurrence: IN)
  Receive Date: 20140319
  Receipt Date: 20140408
  Transmission Date: 20141212
  Serious: Yes (Death, Life-Threatening, Hospitalization)
  Sender: FDA-Public Use
  Company Number: IN-AMGEN-INDCT2014018913

PATIENT
  Age: 53 Year
  Sex: Male
  Weight: 45 kg

DRUGS (31)
  1. DOMPERIDONE W/PANTOPRAZOLE [Concomitant]
     Indication: PROPHYLAXIS
     Dosage: 1 UNK, UNK
     Dates: start: 20130724, end: 20130929
  2. ZAMADOL P [Concomitant]
     Indication: PROPHYLAXIS
     Dosage: UNK
     Dates: start: 20130724, end: 20130929
  3. DARBEPOETIN ALFA [Suspect]
     Indication: ANAEMIA OF MALIGNANT DISEASE
     Dosage: 500 MUG/ML, Q3WK
     Route: 065
     Dates: start: 20130724, end: 20130906
  4. GEMCITABINE [Concomitant]
     Dosage: 1000 MG/M2, UNK
     Dates: start: 20130724, end: 20130912
  5. CARBOPLATINE [Concomitant]
     Dosage: 5 UNK, UNK
     Dates: start: 20130724, end: 20130906
  6. GRANISETRON [Concomitant]
     Indication: PROPHYLAXIS
     Dosage: UNK
     Dates: start: 20130724, end: 20130914
  7. BRO-ZEDEX                          /01691901/ [Concomitant]
     Indication: PROPHYLAXIS
     Dosage: 1 UNK, UNK
     Dates: start: 20130724, end: 20130829
  8. FILGRASTIM [Concomitant]
     Indication: LEUKOPENIA
     Dosage: 300 MUG, UNK
     Dates: start: 20130914, end: 20130917
  9. TAPENTADOL [Concomitant]
     Indication: PROPHYLAXIS
     Dosage: 50 MG, UNK
     Dates: start: 20130731, end: 20130929
  10. MUCAINE                            /00115701/ [Concomitant]
     Indication: PROPHYLAXIS
     Dosage: 2 UNK, UNK
     Dates: start: 20130823, end: 20130929
  11. MUCAINE                            /00115701/ [Concomitant]
     Indication: HYPERCHLORHYDRIA
  12. CLAVOX                             /00756801/ [Concomitant]
     Indication: PROPHYLAXIS
     Dosage: 1 UNK, UNK
     Dates: start: 20130906, end: 20130929
  13. CLAVOX                             /00756801/ [Concomitant]
     Indication: RESPIRATORY TRACT INFECTION
  14. EMANZEN-D [Concomitant]
     Indication: PROPHYLAXIS
     Dosage: 1 UNK, UNK
     Dates: start: 20130816, end: 20130929
  15. ASCORIL [Concomitant]
     Indication: PROPHYLAXIS
     Dosage: 1 UNK, UNK
     Dates: start: 20130906, end: 20130929
  16. TRAMADOL [Concomitant]
     Indication: PROPHYLAXIS
     Dosage: 1 UNK, UNK
     Dates: start: 20130823, end: 20130929
  17. RANTAC [Concomitant]
     Indication: PROPHYLAXIS
     Dosage: 50 MG, UNK
     Dates: start: 20130724, end: 20130912
  18. FOLVITE                            /00024201/ [Concomitant]
     Indication: PROPHYLAXIS
     Dosage: 1 UNK, UNK
     Dates: start: 20130816, end: 20130929
  19. FOLVITE                            /00024201/ [Concomitant]
     Indication: ASTHENIA
  20. FOLVITE                            /00024201/ [Concomitant]
     Indication: DECREASED APPETITE
  21. BECOZINC                           /07428501/ [Concomitant]
     Indication: PROPHYLAXIS
     Dosage: 1 UNK, UNK
     Dates: start: 20130816, end: 20130929
  22. BECOZINC                           /07428501/ [Concomitant]
     Indication: ASTHENIA
  23. BECOZINC                           /07428501/ [Concomitant]
     Indication: DECREASED APPETITE
  24. GLEVO [Concomitant]
     Indication: PROPHYLAXIS
     Dosage: 500 MG, UNK
     Dates: start: 20130731, end: 20130829
  25. DEXA                               /00016001/ [Concomitant]
     Indication: PROPHYLAXIS
     Dosage: 16 MG, UNK
     Dates: start: 20130724, end: 20130929
  26. DEXA                               /00016001/ [Concomitant]
     Indication: BRAIN OEDEMA
  27. LINCTUS CODEINE [Concomitant]
     Indication: PROPHYLAXIS
     Dosage: 1 UNK, UNK
     Dates: start: 20130912, end: 20130929
  28. DUPHALAC                           /00163401/ [Concomitant]
     Indication: PROPHYLAXIS
     Dosage: 2 UNK, UNK
     Dates: start: 20130912, end: 20130929
  29. ANXIT                              /00595201/ [Concomitant]
     Indication: PROPHYLAXIS
     Dosage: 0.5 MG, UNK
     Dates: start: 20130912, end: 20130929
  30. LONAZEP [Concomitant]
     Indication: NERVOUS SYSTEM DISORDER
     Dosage: 0.5 MG, UNK
     Dates: start: 20130928, end: 20130928
  31. MANNITOL [Concomitant]
     Indication: BRAIN OEDEMA
     Dosage: 100 ML, UNK
     Dates: start: 20130926, end: 20130929

REACTIONS (1)
  - Pulmonary embolism [Fatal]
